FAERS Safety Report 5211355-2 (Version None)
Quarter: 2007Q1

REPORT INFORMATION
  Report Type: 
  Country: None (occurrence: None)
  Receive Date: 20070117
  Receipt Date: 20070110
  Transmission Date: 20070707
  Serious: Yes (Hospitalization)
  Sender: FDA-Public Use
  Company Number: US-ALLERGAN-199907038

PATIENT
  Age: 2 Month
  Sex: Male

DRUGS (1)
  1. ALPHAGAN[R] [Suspect]
     Indication: PROPHYLAXIS
     Dosage: 1GTT, QD
     Route: 047
     Dates: start: 19990517, end: 19990517

REACTIONS (3)
  - APNOEA [None]
  - LETHARGY [None]
  - RESPIRATORY RATE DECREASED [None]
